FAERS Safety Report 19999809 (Version 2)
Quarter: 2022Q4

REPORT INFORMATION
  Report Type: Spontaneous
  Country: US (occurrence: US)
  Receive Date: 20211026
  Receipt Date: 20221220
  Transmission Date: 20230112
  Serious: No
  Sender: FDA-Public Use
  Company Number: US-INCYTE CORPORATION-2021IN009623

PATIENT

DRUGS (2)
  1. JAKAFI [Suspect]
     Active Substance: RUXOLITINIB
     Indication: Acute myeloid leukaemia
     Dosage: 10 MILLIGRAM, BID
     Route: 048
     Dates: start: 202106
  2. JAKAFI [Suspect]
     Active Substance: RUXOLITINIB
     Indication: Chronic graft versus host disease
     Dosage: 10 MILLIGRAM, BID
     Route: 048
     Dates: start: 20210728

REACTIONS (2)
  - Anxiety [Unknown]
  - Off label use [Unknown]

NARRATIVE: CASE EVENT DATE: 20210101
